FAERS Safety Report 22598975 (Version 2)
Quarter: 2023Q2

REPORT INFORMATION
  Report Type: Report from Study
  Country: US (occurrence: US)
  Receive Date: 20230614
  Receipt Date: 20230619
  Transmission Date: 20230721
  Serious: Yes (Hospitalization)
  Sender: FDA-Public Use
  Company Number: US-KADMON-US-KAD-23-00014

PATIENT
  Age: 65 Year
  Sex: Male
  Weight: 139.6 kg

DRUGS (5)
  1. KD-033 [Suspect]
     Active Substance: KD-033
     Indication: Metastatic malignant melanoma
     Dosage: 200 UG/KG, QW
     Route: 042
     Dates: start: 20230320
  2. APIXABAN [Concomitant]
     Active Substance: APIXABAN
     Indication: Deep vein thrombosis
     Dosage: 10 MG, QD
     Route: 048
     Dates: start: 202212
  3. DIPHENHYDRAMINE [Concomitant]
     Active Substance: DIPHENHYDRAMINE
     Indication: Pruritus
     Dosage: 1 APPLICATION, TID, PRN QD
     Route: 061
     Dates: start: 20230323
  4. TRAMADOL [Concomitant]
     Active Substance: TRAMADOL
     Indication: Pain
     Dosage: 50 MG, Q6H
     Route: 048
     Dates: start: 20230421
  5. VALSARTAN [Concomitant]
     Active Substance: VALSARTAN
     Indication: Hypertension
     Dosage: 320 MG, QD
     Route: 048

REACTIONS (1)
  - Pyrexia [Recovered/Resolved]

NARRATIVE: CASE EVENT DATE: 20230602
